FAERS Safety Report 7375342-0 (Version None)
Quarter: 2011Q1

REPORT INFORMATION
  Report Type: 
  Country: None (occurrence: None)
  Receive Date: 20110325
  Receipt Date: 20110321
  Transmission Date: 20110831
  Serious: Yes (Death, Other)
  Sender: FDA-Public Use
  Company Number: US-PFIZER INC-2010072349

PATIENT
  Sex: Male

DRUGS (3)
  1. CHANTIX [Suspect]
     Dosage: 1 MG, 2X/DAY
     Dates: start: 20070501, end: 20070605
  2. CHANTIX [Suspect]
     Dosage: 0.5 MG, 2X/DAY
     Dates: start: 20070501, end: 20070501
  3. CHANTIX [Suspect]
     Indication: SMOKING CESSATION THERAPY
     Dosage: 0.5 MG, 1X/DAY
     Dates: start: 20070501, end: 20070501

REACTIONS (8)
  - ABNORMAL DREAMS [None]
  - SELF INJURIOUS BEHAVIOUR [None]
  - AGITATION [None]
  - AGGRESSION [None]
  - ABNORMAL BEHAVIOUR [None]
  - COMPLETED SUICIDE [None]
  - ANXIETY [None]
  - SLEEP PHASE RHYTHM DISTURBANCE [None]
